FAERS Safety Report 4781966-7 (Version None)
Quarter: 2005Q3

REPORT INFORMATION
  Report Type: 
  Country: None (occurrence: None)
  Receive Date: 20050928
  Receipt Date: 20050622
  Transmission Date: 20060218
  Serious: Yes (Hospitalization)
  Sender: FDA-Public Use
  Company Number: US-MERCK-0506USA03311

PATIENT
  Age: 57 Year
  Sex: Male
  Weight: 89 kg

DRUGS (5)
  1. VIOXX [Suspect]
     Indication: ARTHRALGIA
     Route: 048
     Dates: start: 20010213, end: 20010826
  2. VIOXX [Suspect]
     Route: 048
     Dates: end: 20011204
  3. DILTIAZEM HYDROCHLORIDE [Concomitant]
     Route: 065
  4. MEPERIDINE HYDROCHLORIDE [Concomitant]
     Route: 065
  5. RELAFEN [Concomitant]
     Route: 065

REACTIONS (15)
  - ACUTE MYOCARDIAL INFARCTION [None]
  - ARRHYTHMIA [None]
  - BLOOD CHOLESTEROL INCREASED [None]
  - CARDIAC DISORDER [None]
  - CHEST PAIN [None]
  - CORONARY ARTERY DISEASE [None]
  - CORONARY ARTERY OCCLUSION [None]
  - CORONARY ARTERY STENOSIS [None]
  - ELECTROCARDIOGRAM T WAVE AMPLITUDE DECREASED [None]
  - HEART RATE IRREGULAR [None]
  - HYPOVENTILATION [None]
  - INFLUENZA [None]
  - LUNG INFECTION [None]
  - MOBILITY DECREASED [None]
  - MYOCARDIAL INFARCTION [None]
